FAERS Safety Report 17274973 (Version 11)
Quarter: 2022Q1

REPORT INFORMATION
  Report Type: Other
  Country: CN (occurrence: CN)
  Receive Date: 20200116
  Receipt Date: 20220110
  Transmission Date: 20220423
  Serious: Yes (Hospitalization, Other)
  Sender: FDA-Public Use
  Company Number: CN-002147023-NVSC2019CN083520

PATIENT
  Age: 78 Year
  Sex: Female
  Weight: 52 kg

DRUGS (18)
  1. RANIBIZUMAB [Suspect]
     Active Substance: RANIBIZUMAB
     Indication: Neovascular age-related macular degeneration
     Route: 065
     Dates: start: 20191128, end: 20200227
  2. RANIBIZUMAB [Suspect]
     Active Substance: RANIBIZUMAB
     Route: 065
  3. GLICLAZIDE [Concomitant]
     Active Substance: GLICLAZIDE
  4. METFORMIN [Concomitant]
     Active Substance: METFORMIN HYDROCHLORIDE
  5. SITAGLIPTIN PHOSPHATE [Concomitant]
     Active Substance: SITAGLIPTIN PHOSPHATE
  6. NITRENDIPINE [Concomitant]
     Active Substance: NITRENDIPINE
  7. FU FANG DAN SHEN PIAN [Concomitant]
  8. METHYLCOBALAMIN [Concomitant]
     Active Substance: METHYLCOBALAMIN
  9. CALCITRIOL [Concomitant]
     Active Substance: CALCITRIOL
  10. AMLODIPINE [Concomitant]
     Active Substance: AMLODIPINE BESYLATE
  11. CLOPIDOGREL BISULFATE [Concomitant]
     Active Substance: CLOPIDOGREL BISULFATE
  12. PANTOPRAZOLE [Concomitant]
     Active Substance: PANTOPRAZOLE
  13. PREGABALIN [Concomitant]
     Active Substance: PREGABALIN
  14. BIFIDOBACTERIUM ANIMALIS LACTIS [Concomitant]
     Active Substance: BIFIDOBACTERIUM ANIMALIS LACTIS
  15. PROTAMINE ZINC INSULIN INJECTION [Concomitant]
  16. METHYLCOBALAMIN [Concomitant]
     Active Substance: METHYLCOBALAMIN
  17. ESCULIN AND DIGITALISGLYCOSIDES [Concomitant]
     Indication: Age-related macular degeneration
     Route: 047
     Dates: start: 20191129, end: 20200120
  18. SODIUM HYALURONATE [Concomitant]
     Active Substance: HYALURONATE SODIUM
     Indication: Adjuvant therapy
     Route: 047
     Dates: start: 20191125, end: 20200120

REACTIONS (6)
  - Intracranial mass [Recovering/Resolving]
  - Cerebral infarction [Recovering/Resolving]
  - Muscular weakness [Recovering/Resolving]
  - Conjunctival haemorrhage [Recovered/Resolved]
  - Detachment of retinal pigment epithelium [Not Recovered/Not Resolved]
  - Retinal haemorrhage [Recovered/Resolved]

NARRATIVE: CASE EVENT DATE: 20191129
